FAERS Safety Report 4571717-3 (Version None)
Quarter: 2005Q1

REPORT INFORMATION
  Report Type: 
  Country: None (occurrence: None)
  Receive Date: 20050207
  Receipt Date: 20050125
  Transmission Date: 20050727
  Serious: Yes (Hospitalization)
  Sender: FDA-Public Use
  Company Number: US-ROCHE-394401

PATIENT
  Age: 51 Year
  Sex: Female
  Weight: 99.5 kg

DRUGS (2)
  1. CAPECITABINE [Suspect]
     Route: 048
     Dates: start: 20041129, end: 20050106
  2. OXALIPLATIN [Suspect]
     Route: 065
     Dates: start: 20041129, end: 20041227

REACTIONS (6)
  - HAEMOGLOBIN DECREASED [None]
  - HYPOALBUMINAEMIA [None]
  - PYREXIA [None]
  - RASH [None]
  - SEPSIS [None]
  - SINUS TACHYCARDIA [None]
